FAERS Safety Report 7251439-0 (Version None)
Quarter: 2011Q1

REPORT INFORMATION
  Report Type: 
  Country: None (occurrence: None)
  Receive Date: 20110128
  Receipt Date: 20110127
  Transmission Date: 20110831
  Serious: Yes (Other)
  Sender: FDA-Public Use
  Company Number: US-AMGEN-USASP2011005270

PATIENT
  Sex: Male
  Weight: 66.2 kg

DRUGS (1)
  1. NPLATE [Suspect]
     Indication: IDIOPATHIC THROMBOCYTOPENIC PURPURA
     Dosage: 481 A?G, UNK
     Dates: start: 20100507

REACTIONS (1)
  - THERAPEUTIC RESPONSE DECREASED [None]
